FAERS Safety Report 9925048 (Version 2)
Quarter: 2014Q1

REPORT INFORMATION
  Report Type: Spontaneous
  Country: US (occurrence: US)
  Receive Date: 20140226
  Receipt Date: 20140328
  Transmission Date: 20141002
  Serious: Yes (Other)
  Sender: FDA-Public Use
  Company Number: US-BAYER-2014-029057

PATIENT
  Age: 24 Year
  Sex: Female
  Weight: 47.62 kg

DRUGS (12)
  1. MIRENA [Suspect]
     Indication: CONTRACEPTION
     Dosage: 20 MCG/24HR, CONT
     Route: 015
     Dates: start: 20050303, end: 20050502
  2. PERCOCET [Concomitant]
     Indication: PAIN
     Dosage: UNK
     Dates: start: 2000
  3. TYLENOL [PARACETAMOL] [Concomitant]
     Indication: PAIN
     Dosage: UNK
     Dates: start: 2000
  4. MAXALT [Concomitant]
     Indication: MIGRAINE
     Dosage: UNK
     Dates: start: 2000
  5. DIFLUCAN [Concomitant]
     Dosage: UNK
     Route: 048
  6. VICODIN [Concomitant]
  7. LEXAPRO [Concomitant]
  8. MOTRIN [Concomitant]
  9. COLACE [Concomitant]
     Dosage: UNK
  10. HYDROCODONE [Concomitant]
  11. IBUPROFEN [Concomitant]
  12. PROZAC [Concomitant]

REACTIONS (9)
  - Device dislocation [None]
  - Pelvic pain [None]
  - Device dislocation [None]
  - Injury [None]
  - Pain [None]
  - Emotional distress [None]
  - Depression [None]
  - Anxiety [None]
  - Scar [None]
